FAERS Safety Report 6620191-1 (Version None)
Quarter: 2010Q1

REPORT INFORMATION
  Report Type: 
  Country: None (occurrence: None)
  Receive Date: 20100309
  Receipt Date: 20100303
  Transmission Date: 20100710
  Serious: Yes (Hospitalization)
  Sender: FDA-Public Use
  Company Number: US-EISAI INC.-E2020-06142-SPO-US

PATIENT
  Sex: Male

DRUGS (1)
  1. ARICEPT [Suspect]
     Dosage: UNKNOWN
     Route: 048
     Dates: start: 20100201, end: 20100224

REACTIONS (2)
  - MYALGIA [None]
  - RHABDOMYOLYSIS [None]
